FAERS Safety Report 4290010-X (Version None)
Quarter: 2004Q1

REPORT INFORMATION
  Report Type: 
  Country: None (occurrence: None)
  Receive Date: 20040209
  Receipt Date: 20030826
  Transmission Date: 20041129
  Serious: Yes (Hospitalization, Other)
  Sender: FDA-Public Use
  Company Number: USA030538282

PATIENT
  Age: 84 Year
  Sex: Female
  Weight: 64 kg

DRUGS (3)
  1. EVISTA [Suspect]
     Dosage: 60MG/DAY
     Dates: start: 19980714, end: 20030401
  2. FOSAMAX [Concomitant]
  3. PREMPRO [Concomitant]

REACTIONS (1)
  - PULMONARY EMBOLISM [None]
